FAERS Safety Report 5368788-3 (Version None)
Quarter: 2007Q2

REPORT INFORMATION
  Report Type: 
  Country: None (occurrence: None)
  Receive Date: 20070622
  Receipt Date: 20070622
  Transmission Date: 20071010
  Serious: Yes (Life-Threatening, Hospitalization)
  Sender: FDA-Public Use
  Company Number: None

PATIENT
  Age: 74 Year
  Sex: Male
  Weight: 72.5755 kg

DRUGS (6)
  1. OXYCONTIN [Suspect]
     Indication: METASTATIC CARCINOMA OF THE BLADDER
     Dosage: 1 EVERY 12 HOURS  EVERY 12 HOURS  PO
     Route: 048
     Dates: start: 20070505, end: 20070522
  2. OXYCODONE 5 MG [Suspect]
     Indication: ABDOMINAL PAIN LOWER
     Dosage: 1 ONCE OR TWICE A DAY PRN PO
     Route: 048
     Dates: start: 20061120, end: 20070522
  3. CARBOPLATIN AND GEMCITABINE [Concomitant]
  4. ONDANSETRON [Concomitant]
  5. MEGACE [Concomitant]
  6. MARINOL [Concomitant]

REACTIONS (11)
  - ASCITES [None]
  - ASTHENIA [None]
  - BLOOD ALKALINE PHOSPHATASE INCREASED [None]
  - BLOOD BILIRUBIN INCREASED [None]
  - BLOOD CREATININE INCREASED [None]
  - BLOOD UREA INCREASED [None]
  - DEHYDRATION [None]
  - FATIGUE [None]
  - HEPATIC ENCEPHALOPATHY [None]
  - HEPATIC ENZYME INCREASED [None]
  - HEPATIC FAILURE [None]
